FAERS Safety Report 11030853 (Version 1)
Quarter: 2015Q2

REPORT INFORMATION
  Report Type: Spontaneous
  Country: FR (occurrence: FR)
  Receive Date: 20150415
  Receipt Date: 20150415
  Transmission Date: 20150821
  Serious: Yes (Hospitalization)
  Sender: FDA-Public Use
  Company Number: FR-PFIZER INC-2015121830

PATIENT
  Age: 77 Year
  Sex: Male

DRUGS (9)
  1. ROCEPHINE [Concomitant]
     Active Substance: CEFTRIAXONE SODIUM
     Indication: LUNG DISORDER
     Dosage: UNK
     Dates: start: 201502
  2. WELLVONE [Concomitant]
     Active Substance: ATOVAQUONE
     Indication: PNEUMOCYSTIS JIROVECII PNEUMONIA
     Dosage: 750 MG, 3X/DAY
     Route: 048
     Dates: start: 20141211, end: 20150303
  3. TRUVADA [Concomitant]
     Active Substance: EMTRICITABINE\TENOFOVIR DISOPROXIL FUMARATE
     Dosage: 1 DF, 1X/DAY
     Route: 048
     Dates: start: 2006, end: 20150303
  4. ATENOLOL. [Concomitant]
     Active Substance: ATENOLOL
     Dosage: 75 MG, 1X/DAY
     Route: 048
     Dates: start: 201407, end: 20150303
  5. OFLOCET [Concomitant]
     Active Substance: OFLOXACIN
     Indication: LUNG DISORDER
     Dosage: UNK
     Dates: start: 201502, end: 20150212
  6. CERTICAN [Interacting]
     Active Substance: EVEROLIMUS
     Dosage: 0.75 MG, 2X/DAY
     Route: 048
     Dates: start: 2006, end: 20150219
  7. VFEND [Suspect]
     Active Substance: VORICONAZOLE
     Indication: ASPERGILLUS INFECTION
     Dosage: 200 MG, 2X/DAY
     Route: 048
     Dates: start: 20150218
  8. ROVAMYCINE [Concomitant]
     Active Substance: SPIRAMYCIN
     Indication: LUNG DISORDER
     Dosage: UNK
     Dates: start: 20150213
  9. TRIATEC [Concomitant]
     Active Substance: RAMIPRIL
     Dosage: 2.5 MG, DAILY
     Route: 048
     Dates: start: 201407, end: 20150220

REACTIONS (6)
  - Diarrhoea [Recovered/Resolved]
  - Immunosuppressant drug level increased [Recovered/Resolved]
  - Drug interaction [Not Recovered/Not Resolved]
  - Hallucination [Recovered/Resolved]
  - Acute kidney injury [Not Recovered/Not Resolved]
  - Dysarthria [Recovered/Resolved]

NARRATIVE: CASE EVENT DATE: 20150218
